FAERS Safety Report 6388690-8 (Version None)
Quarter: 2009Q4

REPORT INFORMATION
  Report Type: 
  Country: None (occurrence: None)
  Receive Date: 20091002
  Receipt Date: 20091002
  Transmission Date: 20100525
  Serious: No
  Sender: FDA-Public Use
  Company Number: None

PATIENT
  Sex: Female
  Weight: 68.0396 kg

DRUGS (1)
  1. AZITHROMYCIN - BARR LAB [Suspect]
     Indication: BRONCHITIS
     Dosage: 250 MG - 6 TABLETS 2 - FIRST DAY, 1-PER DAY
     Dates: start: 20090922, end: 20090927

REACTIONS (2)
  - BLADDER IRRITATION [None]
  - BLOOD URINE PRESENT [None]
